FAERS Safety Report 21334092 (Version 2)
Quarter: 2022Q4

REPORT INFORMATION
  Report Type: Report from Study
  Country: CA (occurrence: CA)
  Receive Date: 20220914
  Receipt Date: 20221111
  Transmission Date: 20230113
  Serious: Yes (Other)
  Sender: FDA-Public Use
  Company Number: CA-BAUSCH-BL-2022-021593

PATIENT
  Age: 28 Year
  Sex: Female

DRUGS (5)
  1. CONTRAVE [Suspect]
     Active Substance: BUPROPION HYDROCHLORIDE\NALTREXONE HYDROCHLORIDE
     Indication: Weight control
     Dosage: 8/90MG, 1 TAB AM DAILY
     Route: 048
     Dates: start: 20220701
  2. VITAMIN B12 [Concomitant]
     Active Substance: CYANOCOBALAMIN
     Indication: Anaemia
     Dosage: UNK
  3. VITAMIN B12 [Concomitant]
     Active Substance: CYANOCOBALAMIN
     Indication: Fatigue
  4. IRON [Concomitant]
     Active Substance: IRON
     Indication: Anaemia
     Dosage: (1 IN 3 MIN)
  5. IRON [Concomitant]
     Active Substance: IRON
     Indication: Fatigue

REACTIONS (2)
  - Vascular graft [Unknown]
  - Intentional product use issue [Unknown]

NARRATIVE: CASE EVENT DATE: 20220708
